FAERS Safety Report 21284092 (Version 3)
Quarter: 2022Q3

REPORT INFORMATION
  Report Type: Spontaneous
  Country: CA (occurrence: CA)
  Receive Date: 20220901
  Receipt Date: 20220926
  Transmission Date: 20221026
  Serious: Yes (Other)
  Sender: FDA-Public Use
  Company Number: CA-BEH-2022149082

PATIENT
  Age: 77 Year
  Sex: Male
  Weight: 80.9 kg

DRUGS (3)
  1. PRIVIGEN [Suspect]
     Active Substance: HUMAN IMMUNOGLOBULIN G
     Indication: Dermatomyositis
     Dosage: 40 GRAM, FRACTION 4/4 700 ML
     Route: 042
     Dates: start: 20220822, end: 20220822
  2. PRIVIGEN [Suspect]
     Active Substance: HUMAN IMMUNOGLOBULIN G
     Dosage: 20 GRAM, FRACTION 4/4 200 ML
     Route: 065
     Dates: start: 20220822, end: 20220822
  3. PRIVIGEN [Suspect]
     Active Substance: HUMAN IMMUNOGLOBULIN G
     Dosage: 10 GRAM, FRACTION 4/4 100 ML
     Route: 065
     Dates: start: 20220822, end: 20220822

REACTIONS (3)
  - Oxygen saturation decreased [Unknown]
  - No adverse event [Unknown]
  - Off label use [Unknown]

NARRATIVE: CASE EVENT DATE: 20220822
